FAERS Safety Report 18414105 (Version 1)
Quarter: 2020Q4

REPORT INFORMATION
  Report Type: Spontaneous
  Country: ES (occurrence: ES)
  Receive Date: 20201022
  Receipt Date: 20201022
  Transmission Date: 20210114
  Serious: Yes (Other)
  Sender: FDA-Public Use
  Company Number: ES-ACCORD-205969

PATIENT
  Age: 46 Year
  Sex: Female
  Weight: 56.1 kg

DRUGS (6)
  1. METFORMIN [Concomitant]
     Active Substance: METFORMIN HYDROCHLORIDE
     Dosage: STRENGTH: 850 MG, 50 TABLETS
  2. PANTOPRAZOLE [Concomitant]
     Active Substance: PANTOPRAZOLE
     Dosage: STRENGTH: 20 MG, 28 TABLETS
  3. MOTILIUM [Concomitant]
     Active Substance: DOMPERIDONE
     Dosage: STRENGTH: 10 MG, 30 TABLETS
  4. ORFIDAL [Concomitant]
     Active Substance: LORAZEPAM
     Dosage: STRENGTH: 1MG, 50 TABLETS
  5. FENTANYL RATIOPHARM MATRIX [Concomitant]
     Dosage: STRENGTH: 25 MICROGRAMS/HOUR
  6. OXALIPLATIN. [Suspect]
     Active Substance: OXALIPLATIN
     Indication: GASTRIC CANCER
     Route: 042
     Dates: start: 20200901, end: 20200922

REACTIONS (4)
  - Dysaesthesia pharynx [Recovered/Resolved]
  - Monoparesis [Recovered/Resolved]
  - Paraparesis [Recovered/Resolved]
  - Off label use [Unknown]

NARRATIVE: CASE EVENT DATE: 20200922
